FAERS Safety Report 8112350-6 (Version None)
Quarter: 2012Q1

REPORT INFORMATION
  Report Type: 
  Country: None (occurrence: None)
  Receive Date: 20120203
  Receipt Date: 20111214
  Transmission Date: 20120608
  Serious: No
  Sender: FDA-Public Use
  Company Number: US-ASTRAZENECA-2011SE75730

PATIENT

DRUGS (1)
  1. VANDETANIB [Suspect]
     Route: 048

REACTIONS (1)
  - GLOMERULAR FILTRATION RATE DECREASED [None]
